FAERS Safety Report 24157009 (Version 3)
Quarter: 2024Q3

REPORT INFORMATION
  Report Type: Report from Study
  Country: DE (occurrence: DE)
  Receive Date: 20240731
  Receipt Date: 20240814
  Transmission Date: 20241017
  Serious: Yes (Death, Hospitalization, Other)
  Sender: BAXTER
  Company Number: DE-BAXTER-2024BAX021093

PATIENT
  Age: 47 Year
  Sex: Male

DRUGS (4)
  1. OLIMEL E [Suspect]
     Active Substance: AMINO ACIDS\DEXTROSE\ELECTROLYTES NOS\SOYBEAN OIL
     Indication: Parenteral nutrition
     Dosage: 1000 ML AT AN UNSPECIFIED FREQUENCY ADMINISTERED VIA CENTRAL VENOUS ROUTE
     Route: 042
     Dates: start: 20240220, end: 20240802
  2. CERNEVIT [Suspect]
     Active Substance: VITAMINS
     Indication: Parenteral nutrition
     Dosage: 750 MG AT AN UNSPECIFIED FREQUENCY ADMINISTERED VIA CENTRAL VENOUS ROUTE
     Route: 042
     Dates: start: 20240220, end: 20240802
  3. ELECTROLYTES NOS\MINERALS [Suspect]
     Active Substance: ELECTROLYTES NOS\MINERALS
     Indication: Parenteral nutrition
     Dosage: (MANUFACTURER: LABORATOIRE AGUETTANT S.A.S) 10 ML AT AN UNSPECIFIED FREQUENCY ADMINISTERED VIA CENTR
     Route: 042
     Dates: start: 20240220, end: 20240802
  4. UNSPECIFIED INGREDIENT [Suspect]
     Active Substance: UNSPECIFIED INGREDIENT
     Route: 065

REACTIONS (7)
  - Death [Fatal]
  - General physical health deterioration [Recovered/Resolved]
  - Blood test abnormal [Recovered/Resolved]
  - Ascites [Not Recovered/Not Resolved]
  - Nausea [Recovered/Resolved]
  - Vomiting [Recovered/Resolved]
  - Oedema peripheral [Not Recovered/Not Resolved]

NARRATIVE: CASE EVENT DATE: 20240629
